FAERS Safety Report 5853504-9 (Version None)
Quarter: 2008Q3

REPORT INFORMATION
  Report Type: 
  Country: None (occurrence: None)
  Receive Date: 20080818
  Receipt Date: 20080501
  Transmission Date: 20090109
  Serious: No
  Sender: FDA-Public Use
  Company Number: WAES 0805USA00315

PATIENT
  Age: 52 Year
  Sex: Female

DRUGS (3)
  1. JANUVIA [Suspect]
     Indication: DIABETES MELLITUS
     Dosage: 100 MG/DAILY/PO
     Route: 048
     Dates: start: 20070101, end: 20080201
  2. LOTREL [Concomitant]
  3. VYTORIN [Concomitant]

REACTIONS (3)
  - DRUG SCREEN FALSE POSITIVE [None]
  - NAUSEA [None]
  - ROAD TRAFFIC ACCIDENT [None]
